FAERS Safety Report 7024915-3 (Version None)
Quarter: 2010Q4

REPORT INFORMATION
  Report Type: 
  Country: None (occurrence: None)
  Receive Date: 20101001
  Receipt Date: 20100923
  Transmission Date: 20110411
  Serious: Yes (Other)
  Sender: FDA-Public Use
  Company Number: BR-PFIZER INC-2010114216

PATIENT
  Age: 45 Year
  Sex: Female
  Weight: 59 kg

DRUGS (6)
  1. CHAMPIX [Suspect]
     Indication: TOBACCO USER
     Dosage: UNK
     Route: 048
     Dates: start: 20100902
  2. CHAMPIX [Suspect]
     Dosage: 1 MG, 2X/DAY, EVERY 12 HOURS
     Route: 048
  3. PURAN T4 [Concomitant]
     Indication: THYROID ATROPHY
     Dosage: UNK
     Dates: start: 20070101
  4. TRAMADOL HCL [Concomitant]
     Indication: INTERVERTEBRAL DISC PROTRUSION
     Dosage: 50 MG, 1X/DAY
     Route: 048
     Dates: start: 20040101
  5. BUPROPION HYDROCHLORIDE [Concomitant]
     Dosage: UNK
  6. ZYBAN [Concomitant]
     Dosage: UNK

REACTIONS (4)
  - ANXIETY [None]
  - DYSSTASIA [None]
  - GAIT DISTURBANCE [None]
  - TORTICOLLIS [None]
